FAERS Safety Report 8163348-3 (Version None)
Quarter: 2012Q1

REPORT INFORMATION
  Report Type: 
  Country: None (occurrence: None)
  Receive Date: 20120224
  Receipt Date: 20120215
  Transmission Date: 20120608
  Serious: Yes (Hospitalization)
  Sender: FDA-Public Use
  Company Number: US-B.I. PHARMACEUTICALS,INC./RIDGEFIELD-2012-BP-02943BP

PATIENT
  Sex: Female

DRUGS (5)
  1. MIRAPEX [Suspect]
     Indication: RESTLESS LEGS SYNDROME
     Dosage: 1 MG
     Route: 048
     Dates: start: 20110601
  2. SEROQUEL [Concomitant]
     Indication: SLEEP DISORDER
     Dosage: 600 MG
     Route: 048
  3. SYNTHROID [Concomitant]
     Indication: HYPOTHYROIDISM
     Dosage: 0.75 MG
     Route: 048
  4. CYMBALTA [Concomitant]
     Indication: DEPRESSION
     Dosage: 120 MG
     Route: 048
  5. XANAX [Concomitant]
     Indication: STRESS
     Dosage: 2 MG
     Route: 048

REACTIONS (2)
  - FALL [None]
  - JOINT DISLOCATION [None]
